FAERS Safety Report 12130612 (Version 1)
Quarter: 2016Q1

REPORT INFORMATION
  Report Type: Spontaneous
  Country: US (occurrence: None)
  Receive Date: 20160229
  Receipt Date: 20160229
  Transmission Date: 20160526
  Serious: No
  Sender: FDA-Public Use
  Company Number: None

PATIENT
  Age: 43 Year
  Sex: Female
  Weight: 72.58 kg

DRUGS (1)
  1. NOVOCAIN [Suspect]
     Active Substance: PROCAINE HYDROCHLORIDE

REACTIONS (4)
  - Nerve injury [None]
  - Iatrogenic injury [None]
  - Hypoaesthesia [None]
  - Facial pain [None]

NARRATIVE: CASE EVENT DATE: 20150415
